FAERS Safety Report 24179080 (Version 1)
Quarter: 2024Q3

REPORT INFORMATION
  Report Type: Spontaneous
  Country: CA (occurrence: CA)
  Receive Date: 20240806
  Receipt Date: 20240806
  Transmission Date: 20241017
  Serious: Yes (Hospitalization)
  Sender: ACCORD
  Company Number: None

PATIENT
  Age: 80 Year
  Sex: Female

DRUGS (10)
  1. METHOTREXATE SODIUM [Suspect]
     Active Substance: METHOTREXATE SODIUM
     Indication: Rheumatoid arthritis
     Route: 048
  2. ASPIRIN [Concomitant]
     Active Substance: ASPIRIN
  3. CALCIUM\CHOLECALCIFEROL [Concomitant]
     Active Substance: CALCIUM\CHOLECALCIFEROL
  4. CYANOCOBALAMIN [Concomitant]
     Active Substance: CYANOCOBALAMIN
  5. FOLIC ACID [Concomitant]
     Active Substance: FOLIC ACID
  6. HYDROXYCHLOROQUINE [Concomitant]
     Active Substance: HYDROXYCHLOROQUINE
     Route: 065
  7. NIACINAMIDE [Concomitant]
     Active Substance: NIACINAMIDE
  8. CICLESONIDE [Concomitant]
     Active Substance: CICLESONIDE
     Dosage: SPRAY, METERED DOSE
  9. PREGABALIN [Concomitant]
     Active Substance: PREGABALIN
     Dosage: CAPSULES
  10. SYNTHROID [Concomitant]
     Active Substance: LEVOTHYROXINE SODIUM

REACTIONS (3)
  - Rhinitis [Unknown]
  - Epistaxis [Unknown]
  - COVID-19 [Unknown]
